FAERS Safety Report 8291291-8 (Version None)
Quarter: 2012Q2

REPORT INFORMATION
  Report Type: 
  Country: None (occurrence: None)
  Receive Date: 20120417
  Receipt Date: 20120402
  Transmission Date: 20120825
  Serious: Yes (Other)
  Sender: FDA-Public Use
  Company Number: NL-WATSON-2012-06082

PATIENT
  Age: 24 Year
  Sex: Male

DRUGS (1)
  1. CLINDAMYCIN HCL [Suspect]
     Indication: FOLLICULITIS
     Dosage: 300 MG, SINGLE
     Route: 065

REACTIONS (1)
  - OESOPHAGEAL ULCER [None]
